APPROVED DRUG PRODUCT: ENTACAPONE
Active Ingredient: ENTACAPONE
Strength: 200MG
Dosage Form/Route: TABLET;ORAL
Application: A202394 | Product #001
Applicant: PHARMOBEDIENT CONSULTING LLC
Approved: May 13, 2013 | RLD: No | RS: No | Type: DISCN